FAERS Safety Report 9517006 (Version 1)
Quarter: 2013Q3

REPORT INFORMATION
  Report Type: Spontaneous
  Country: US (occurrence: US)
  Receive Date: 20130911
  Receipt Date: 20130911
  Transmission Date: 20140515
  Serious: No
  Sender: FDA-Public Use
  Company Number: US-ASTRAZENECA-2013SE52007

PATIENT
  Age: 55 Year
  Sex: Female
  Weight: 74.8 kg

DRUGS (5)
  1. SYMBICORT [Suspect]
     Indication: ASTHMA
     Dosage: 160-4.5, UNKNOWN
     Route: 055
     Dates: start: 2011, end: 2012
  2. SYMBICORT [Suspect]
     Indication: ASTHMA
     Dosage: 80-4.5 BID
     Route: 055
     Dates: start: 20130709
  3. LEVOTHYCOXINE [Concomitant]
     Indication: HYPOTHYROIDISM
  4. MIRTAZAPINE ODT [Concomitant]
  5. CLONAZEPAM [Concomitant]

REACTIONS (3)
  - Fatigue [Not Recovered/Not Resolved]
  - Weight increased [Unknown]
  - Tremor [Unknown]
